FAERS Safety Report 19984555 (Version 5)
Quarter: 2022Q1

REPORT INFORMATION
  Report Type: Report from Study
  Country: US (occurrence: US)
  Receive Date: 20211021
  Receipt Date: 20220125
  Transmission Date: 20220423
  Serious: Yes (Death, Life-Threatening, Hospitalization)
  Sender: FDA-Public Use
  Company Number: US-PFIZER INC-2021754046

PATIENT
  Age: 57 Year
  Sex: Female
  Weight: 60.5 kg

DRUGS (58)
  1. FLUDARABINE PHOSPHATE [Suspect]
     Active Substance: FLUDARABINE PHOSPHATE
     Indication: Plasma cell myeloma
     Dosage: 30 MG, 1X/DAY(1 IN 1 D)
     Route: 042
     Dates: start: 20210414, end: 20210416
  2. CYCLOPHOSPHAMIDE [Suspect]
     Active Substance: CYCLOPHOSPHAMIDE
     Indication: Plasma cell myeloma
     Dosage: 500 MILLIGRAM, 1 IN 1 D, INJECTION FOR INFUSION
     Route: 042
     Dates: start: 20210414, end: 20210416
  3. CYCLOPHOSPHAMIDE [Suspect]
     Active Substance: CYCLOPHOSPHAMIDE
     Dosage: UNK
     Dates: start: 20210525, end: 20210701
  4. IDECABTAGENE VICLEUCEL [Suspect]
     Active Substance: IDECABTAGENE VICLEUCEL
     Indication: Plasma cell myeloma
     Dosage: 482.18 X 1 0^6 CAR + T CELLS, SINGLE
     Route: 042
     Dates: start: 20210419, end: 20210419
  5. SODIUM CHLORIDE [Concomitant]
     Active Substance: SODIUM CHLORIDE
     Indication: Sepsis
     Dosage: 10-15 MILLILITER Q12 HOURS, 1 IN 12HR
     Route: 042
     Dates: start: 20210426
  6. SODIUM CHLORIDE [Concomitant]
     Active Substance: SODIUM CHLORIDE
     Dosage: 20-25 ML/HR, PRN, AS NEEDED
     Route: 042
     Dates: start: 20210427
  7. SODIUM CHLORIDE [Concomitant]
     Active Substance: SODIUM CHLORIDE
     Dosage: ONCE
     Route: 042
     Dates: start: 20210427, end: 20210427
  8. SODIUM CHLORIDE [Concomitant]
     Active Substance: SODIUM CHLORIDE
     Dosage: ONCE
     Route: 042
     Dates: start: 20210429, end: 20210429
  9. SODIUM CHLORIDE [Concomitant]
     Active Substance: SODIUM CHLORIDE
     Dosage: UNK, AS NEEDED
     Route: 042
     Dates: start: 20210430
  10. SODIUM CHLORIDE [Concomitant]
     Active Substance: SODIUM CHLORIDE
     Dosage: 10-15 ML, AS NEEDED, INTRACATHETER
     Dates: start: 20210505
  11. SODIUM CHLORIDE [Concomitant]
     Active Substance: SODIUM CHLORIDE
     Dosage: 100-150ML/HR, AS NEEDED
     Route: 042
     Dates: start: 20210507
  12. SODIUM CHLORIDE [Concomitant]
     Active Substance: SODIUM CHLORIDE
     Dosage: ONCE
     Route: 042
     Dates: start: 20210507, end: 20210507
  13. SODIUM CHLORIDE [Concomitant]
     Active Substance: SODIUM CHLORIDE
     Dosage: ONCE
     Route: 042
     Dates: start: 20210512, end: 20210512
  14. SODIUM CHLORIDE [Concomitant]
     Active Substance: SODIUM CHLORIDE
     Dosage: UNK, AS NEEDED
     Route: 042
     Dates: start: 20210512, end: 20210512
  15. SODIUM CHLORIDE [Concomitant]
     Active Substance: SODIUM CHLORIDE
     Dosage: UNK, ONCE
     Route: 042
     Dates: start: 20210606, end: 20210606
  16. LACTATED RINGERS SOLUTION [Concomitant]
     Active Substance: CALCIUM CHLORIDE\POTASSIUM CHLORIDE\SODIUM CHLORIDE\SODIUM LACTATE
     Indication: Sepsis
     Dosage: UNK, SINGLE, IVB
     Dates: start: 20210426, end: 20210426
  17. LACTATED RINGERS SOLUTION [Concomitant]
     Active Substance: CALCIUM CHLORIDE\POTASSIUM CHLORIDE\SODIUM CHLORIDE\SODIUM LACTATE
     Dosage: UNK, SINGLE
     Route: 042
     Dates: start: 20210427, end: 20210427
  18. LACTATED RINGERS SOLUTION [Concomitant]
     Active Substance: CALCIUM CHLORIDE\POTASSIUM CHLORIDE\SODIUM CHLORIDE\SODIUM LACTATE
     Dosage: 500 ML, 2X/DAY, X 2, IVB
     Dates: start: 20210429, end: 20210429
  19. LACTATED RINGERS SOLUTION [Concomitant]
     Active Substance: CALCIUM CHLORIDE\POTASSIUM CHLORIDE\SODIUM CHLORIDE\SODIUM LACTATE
     Dosage: UNK, ONCE
     Route: 042
     Dates: start: 20210606, end: 20210606
  20. MAGNESIUM SULFATE [Concomitant]
     Active Substance: MAGNESIUM SULFATE
     Indication: Hypomagnesaemia
     Dosage: UNK, ONCE
     Route: 042
     Dates: start: 20210428, end: 20210428
  21. MAGNESIUM SULFATE [Concomitant]
     Active Substance: MAGNESIUM SULFATE
     Dosage: UNK, ONCE
     Route: 042
     Dates: start: 20210430, end: 20210430
  22. MAGNESIUM SULFATE [Concomitant]
     Active Substance: MAGNESIUM SULFATE
     Dosage: UNK, ONCE
     Route: 042
     Dates: start: 20210503, end: 20210503
  23. MAGNESIUM SULFATE [Concomitant]
     Active Substance: MAGNESIUM SULFATE
     Dosage: UNK, ONCE
     Route: 042
     Dates: start: 20210510, end: 20210510
  24. MAGNESIUM SULFATE [Concomitant]
     Active Substance: MAGNESIUM SULFATE
     Dosage: UNK, AS NEEDED
     Route: 042
     Dates: start: 20210510
  25. ACETAMINOPHEN [Concomitant]
     Active Substance: ACETAMINOPHEN
     Dosage: UNK, ONCE
     Route: 048
     Dates: start: 20210427
  26. CEFEPIME HYDROCHLORIDE [Concomitant]
     Active Substance: CEFEPIME HYDROCHLORIDE
     Dosage: 2 G, 2X/DAY (1 IN 12 HR)
     Route: 042
     Dates: start: 20210426
  27. CARVEDILOL [Concomitant]
     Active Substance: CARVEDILOL
     Indication: Ventricular dysfunction
     Dosage: 6.25 MG, 2 IN 1 D
     Route: 048
     Dates: start: 20210115
  28. CARVEDILOL [Concomitant]
     Active Substance: CARVEDILOL
     Dosage: 6.25 MG (WITH MEALS)
     Route: 048
     Dates: start: 20210426
  29. LORAZEPAM [Concomitant]
     Active Substance: LORAZEPAM
     Indication: Anxiety
     Dosage: 3 MG, AS NEEDED
     Route: 048
     Dates: start: 20210426
  30. LIDOCAINE HYDROCHLORIDE [Concomitant]
     Active Substance: LIDOCAINE HYDROCHLORIDE
     Indication: Bone pain
     Dosage: 1 PATCH, 1 IN 1 D, TD, POULTICE OR PATCH
     Dates: start: 20210420
  31. LIDOCAINE HYDROCHLORIDE [Concomitant]
     Active Substance: LIDOCAINE HYDROCHLORIDE
     Indication: Back pain
  32. ALBUMIN HUMAN [Concomitant]
     Active Substance: ALBUMIN HUMAN
     Indication: Sepsis
     Dosage: UNK, ONCE
     Route: 042
     Dates: start: 20210427, end: 20210427
  33. ALBUMIN HUMAN [Concomitant]
     Active Substance: ALBUMIN HUMAN
     Dosage: UNK, ONCE
     Route: 042
     Dates: start: 202106, end: 202106
  34. ALBUMIN HUMAN [Concomitant]
     Active Substance: ALBUMIN HUMAN
     Dosage: UNK, ONCE
     Route: 042
     Dates: start: 202106, end: 202106
  35. GABAPENTIN [Concomitant]
     Active Substance: GABAPENTIN
     Indication: Neuropathy peripheral
     Dosage: 900 MG, 3 IN 1 D
     Route: 048
     Dates: start: 201902
  36. GABAPENTIN [Concomitant]
     Active Substance: GABAPENTIN
     Dosage: 900 MG, 1 IN 8 HR
     Route: 048
     Dates: start: 20210426
  37. FILGRASTIM AAFI [Concomitant]
     Dosage: UNK, ONCE
     Route: 058
     Dates: start: 20210426
  38. FILGRASTIM AAFI [Concomitant]
     Dosage: UNK, ONCE
     Route: 058
     Dates: start: 20210428
  39. FILGRASTIM AAFI [Concomitant]
     Dosage: UNK, ONCE
     Route: 058
     Dates: start: 20210503
  40. FILGRASTIM AAFI [Concomitant]
     Dosage: UNK, AS NEEDED
     Route: 058
     Dates: start: 20210507, end: 20210507
  41. IMMUNE GLOBULIN NOS [Concomitant]
     Active Substance: IMMUNE GLOBULIN NOS
     Dosage: UNK, ONCE
     Route: 042
     Dates: start: 20210427
  42. ACYCLOVIR [Concomitant]
     Active Substance: ACYCLOVIR
     Dosage: 800 MG, 2X/DAY, 2 IN 1 D
     Route: 048
     Dates: start: 20210426
  43. TRAMADOL [Concomitant]
     Active Substance: TRAMADOL
     Indication: Bone pain
     Dosage: UNK, AS NEEDED
     Route: 048
     Dates: start: 2019
  44. TRAMADOL [Concomitant]
     Active Substance: TRAMADOL
     Dosage: UNK, AS NEEDED
     Route: 048
     Dates: start: 20210426
  45. DIPHENHYDRAMINE HYDROCHLORIDE [Concomitant]
     Active Substance: DIPHENHYDRAMINE HYDROCHLORIDE
     Dosage: UNK, ONCE
     Route: 048
     Dates: start: 20210427, end: 20210427
  46. BACTRIM [Concomitant]
     Active Substance: SULFAMETHOXAZOLE\TRIMETHOPRIM
     Indication: Infection prophylaxis
     Dosage: [SULFAMETHOXAZOLE 800MG]/[TRIMETHOPRIM 160MG], 3 IN 1 WK
     Route: 048
     Dates: start: 202011
  47. BACTRIM [Concomitant]
     Active Substance: SULFAMETHOXAZOLE\TRIMETHOPRIM
     Dosage: 800 MG, (3 IN 1 WK)
     Route: 048
     Dates: start: 20210426
  48. BACTRIM [Concomitant]
     Active Substance: SULFAMETHOXAZOLE\TRIMETHOPRIM
     Dosage: 160 MG (3 IN 1 WK)
     Route: 048
     Dates: start: 20210426
  49. ALUMINIUM/MAGNESIUM HYDROXIDE/SIMETICONE [Concomitant]
     Dosage: 200 MG-200 MG-20 MG/ 5 ML ORAL SUSPENSION
     Route: 048
     Dates: start: 20210426
  50. ELECTROLYTE A [Concomitant]
     Dosage: UNK
  51. VALACYCLOVIR [Concomitant]
     Active Substance: VALACYCLOVIR HYDROCHLORIDE
     Indication: Infection prophylaxis
     Dosage: 1000 MG, 2 IN 1 D
     Route: 048
     Dates: start: 20190719
  52. VALACYCLOVIR [Concomitant]
     Active Substance: VALACYCLOVIR HYDROCHLORIDE
     Dosage: 1000 MG, 2 IN 1 D
     Route: 048
     Dates: start: 20210504
  53. TOCILIZUMAB [Concomitant]
     Active Substance: TOCILIZUMAB
     Indication: Cytokine release syndrome
     Dosage: UNK
  54. CYANOCOBALAMIN [Concomitant]
     Active Substance: CYANOCOBALAMIN
     Indication: Anaemia
     Dosage: 1000 UG/ML IN 1 WEEK
     Route: 030
     Dates: start: 20210115
  55. FAMOTIDINE [Concomitant]
     Active Substance: FAMOTIDINE
     Indication: Gastrooesophageal reflux disease
     Dosage: UNK, AS NEEDED
     Route: 048
     Dates: start: 202002
  56. CANNABIS SATIVA SUBSP. INDICA TOP [Concomitant]
     Active Substance: CANNABIS SATIVA SUBSP. INDICA TOP
     Indication: Bone pain
     Dosage: INHALANT, AS NEEDED
     Route: 055
  57. CANNABIS SATIVA SUBSP. INDICA TOP [Concomitant]
     Active Substance: CANNABIS SATIVA SUBSP. INDICA TOP
     Indication: Back pain
  58. ERGOCALCIFEROL [Concomitant]
     Active Substance: ERGOCALCIFEROL
     Indication: Prophylaxis
     Dosage: 50000 IU, 1 IN 1 WK
     Route: 048
     Dates: start: 20210201

REACTIONS (3)
  - Neoplasm progression [Fatal]
  - Subdural haematoma [Recovered/Resolved]
  - Sepsis [Recovered/Resolved]

NARRATIVE: CASE EVENT DATE: 20210513
